FAERS Safety Report 16155239 (Version 1)
Quarter: 2019Q2

REPORT INFORMATION
  Report Type: Spontaneous
  Country: IN (occurrence: IN)
  Receive Date: 20190403
  Receipt Date: 20190403
  Transmission Date: 20190711
  Serious: Yes (Other)
  Sender: FDA-Public Use
  Company Number: IN-BAXTER-2019BAX006651

PATIENT
  Sex: Female

DRUGS (5)
  1. BUPICAN HEAVY [Suspect]
     Active Substance: BUPIVACAINE HYDROCHLORIDE
     Indication: FOETAL EXPOSURE DURING PREGNANCY
     Route: 064
  2. FENTANYL. [Suspect]
     Active Substance: FENTANYL
     Indication: FOETAL EXPOSURE DURING PREGNANCY
     Route: 064
  3. INTRALIPID [Suspect]
     Active Substance: EGG PHOSPHOLIPIDS\GLYCERIN\SOYBEAN OIL
     Indication: FOETAL EXPOSURE DURING PREGNANCY
     Route: 064
  4. INTRALIPID [Suspect]
     Active Substance: EGG PHOSPHOLIPIDS\GLYCERIN\SOYBEAN OIL
     Indication: TOXICITY TO VARIOUS AGENTS
  5. LIGNOCAINE WITH ADRENALINE [Suspect]
     Active Substance: EPINEPHRINE BITARTRATE\LIDOCAINE HYDROCHLORIDE
     Indication: FOETAL EXPOSURE DURING PREGNANCY
     Dosage: 3 ML LIGNOCAINE 2% WITH ADRENALINE
     Route: 064

REACTIONS (2)
  - Foetal exposure during pregnancy [Unknown]
  - Foetal heart rate deceleration abnormality [Unknown]
